FAERS Safety Report 16588225 (Version 1)
Quarter: 2019Q3

REPORT INFORMATION
  Report Type: Report from Study
  Country: US (occurrence: US)
  Receive Date: 20190717
  Receipt Date: 20190717
  Transmission Date: 20191004
  Serious: Yes (Other)
  Sender: FDA-Public Use
  Company Number: US-JAZZ-2019-US-009624

PATIENT
  Sex: Female

DRUGS (4)
  1. MODAFINIL. [Concomitant]
     Active Substance: MODAFINIL
     Indication: PRODUCT USED FOR UNKNOWN INDICATION
  2. XYREM [Suspect]
     Active Substance: SODIUM OXYBATE
     Indication: NARCOLEPSY
     Dosage: 2.25 G, BID
     Route: 048
     Dates: start: 200801, end: 200801
  3. XYREM [Suspect]
     Active Substance: SODIUM OXYBATE
     Indication: CATAPLEXY
     Dosage: DOSE ADJUSTMENT
     Route: 048
     Dates: start: 200801, end: 201007
  4. XYREM [Suspect]
     Active Substance: SODIUM OXYBATE
     Dosage: 6.25 G, BID
     Route: 048
     Dates: start: 201007, end: 201105

REACTIONS (9)
  - Enuresis [Recovered/Resolved]
  - Dizziness [Recovered/Resolved]
  - Mouth swelling [Recovered/Resolved]
  - Chest discomfort [Recovered/Resolved]
  - Cholecystectomy [Unknown]
  - Tooth fracture [Recovered/Resolved]
  - Limb discomfort [Recovered/Resolved]
  - Weight decreased [Recovered/Resolved]
  - Product preparation error [Unknown]

NARRATIVE: CASE EVENT DATE: 2008
